FAERS Safety Report 7929173-0 (Version None)
Quarter: 2011Q4

REPORT INFORMATION
  Report Type: 
  Country: None (occurrence: None)
  Receive Date: 20111120
  Receipt Date: 20111108
  Transmission Date: 20120403
  Serious: Yes (Hospitalization)
  Sender: FDA-Public Use
  Company Number: CA-ELI_LILLY_AND_COMPANY-CA201109004955

PATIENT
  Sex: Female
  Weight: 48 kg

DRUGS (4)
  1. SYNTHROID [Concomitant]
     Dosage: UNK, UNKNOWN
     Route: 065
  2. CELEBREX [Concomitant]
     Dosage: UNK, UNKNOWN
     Route: 065
  3. FORTEO [Suspect]
     Indication: OSTEOPOROSIS
     Dosage: 20 UG, QD
     Route: 058
     Dates: start: 20110207, end: 20110831
  4. FORTEO [Suspect]
     Dosage: 20 UG, QD
     Route: 058
     Dates: start: 20110914

REACTIONS (1)
  - NEPHROLITHIASIS [None]
